FAERS Safety Report 8006837-4 (Version None)
Quarter: 2011Q4

REPORT INFORMATION
  Report Type: 
  Country: None (occurrence: None)
  Receive Date: 20111227
  Receipt Date: 20111221
  Transmission Date: 20120403
  Serious: Yes (Death)
  Sender: FDA-Public Use
  Company Number: PHHY2011IL111293

PATIENT
  Age: 76 Year
  Sex: Male

DRUGS (1)
  1. SANDOSTATIN LAR [Suspect]
     Indication: CARCINOID TUMOUR
     Dosage: 60 MG EVERY 28 DAYS
     Dates: start: 20080421, end: 20111212

REACTIONS (4)
  - SMALL INTESTINAL HAEMORRHAGE [None]
  - NEOPLASM MALIGNANT [None]
  - TERMINAL STATE [None]
  - ORGAN FAILURE [None]
